FAERS Safety Report 17956468 (Version 1)
Quarter: 2020Q2

REPORT INFORMATION
  Report Type: Spontaneous
  Country: US (occurrence: US)
  Receive Date: 20200629
  Receipt Date: 20200629
  Transmission Date: 20200714
  Serious: No
  Sender: FDA-Public Use
  Company Number: US-MYLANLABS-2020M1056630

PATIENT
  Sex: Male
  Weight: 68 kg

DRUGS (2)
  1. AMNESTEEM [Suspect]
     Active Substance: ISOTRETINOIN
     Indication: ACNE
     Dosage: 40 MILLIGRAM, QD (TAKING THE MEDICATION ONCE DAILY FOR THE LAST 4.5 TO 5 MONTHS)
     Route: 048
  2. AMNESTEEM [Suspect]
     Active Substance: ISOTRETINOIN
     Dosage: TWICE DAILY 3 TIMES WEEKLY AND DAILY FOR THE REST OF THE WEEK
     Route: 048
     Dates: start: 20200610

REACTIONS (2)
  - Intentional product misuse [Not Recovered/Not Resolved]
  - Circumstance or information capable of leading to medication error [Unknown]

NARRATIVE: CASE EVENT DATE: 20200610
